FAERS Safety Report 8337034-0 (Version None)
Quarter: 2012Q2

REPORT INFORMATION
  Report Type: 
  Country: None (occurrence: None)
  Receive Date: 20120504
  Receipt Date: 20120424
  Transmission Date: 20120825
  Serious: Yes (Other)
  Sender: FDA-Public Use
  Company Number: CA-JNJFOC-20120413332

PATIENT
  Sex: Female
  Weight: 77.6 kg

DRUGS (13)
  1. REMICADE [Suspect]
     Dosage: 16TH INFUSION
     Route: 042
     Dates: start: 20120424
  2. PREDNISONE TAB [Concomitant]
     Route: 065
  3. ASPIRIN [Concomitant]
     Route: 065
  4. VITAMINS NOS [Concomitant]
     Route: 065
  5. NORVASC [Concomitant]
     Route: 065
  6. HYDROXYQUINOLINE [Concomitant]
     Route: 065
  7. REMICADE [Suspect]
     Indication: ARTHRITIS
     Route: 042
     Dates: start: 20090304
  8. IRON [Concomitant]
     Route: 065
  9. AMLODIPINE [Concomitant]
     Route: 065
  10. PLAVIX [Concomitant]
     Route: 065
  11. GRAVOL TAB [Concomitant]
     Indication: PREMEDICATION
     Route: 042
  12. POTASSIUM CHLORIDE [Concomitant]
     Route: 065
  13. CALCIUM [Concomitant]
     Route: 065

REACTIONS (7)
  - PAIN [None]
  - CRYING [None]
  - CHILLS [None]
  - NAUSEA [None]
  - COMMUNICATION DISORDER [None]
  - PALLOR [None]
  - INFUSION RELATED REACTION [None]
